FAERS Safety Report 25522438 (Version 2)
Quarter: 2025Q3

REPORT INFORMATION
  Report Type: Spontaneous
  Country: US (occurrence: US)
  Receive Date: 20250707
  Receipt Date: 20250715
  Transmission Date: 20251021
  Serious: Yes (Other)
  Sender: ROCHE
  Company Number: US-ROCHE-10000325421

PATIENT
  Sex: Female

DRUGS (1)
  1. XOLAIR [Suspect]
     Active Substance: OMALIZUMAB
     Indication: Anaphylactic reaction
     Dosage: STRENGTH:300MG/2ML
     Route: 058
     Dates: start: 202504

REACTIONS (3)
  - Anaphylactic reaction [Recovered/Resolved]
  - Abdominal distension [Recovered/Resolved]
  - Illness [Recovered/Resolved]
